FAERS Safety Report 7504542-1 (Version None)
Quarter: 2011Q2

REPORT INFORMATION
  Report Type: 
  Country: None (occurrence: None)
  Receive Date: 20110525
  Receipt Date: 20110517
  Transmission Date: 20111010
  Serious: Yes (Other)
  Sender: FDA-Public Use
  Company Number: CA-ABBOTT-11P-028-0726578-00

PATIENT
  Sex: Male
  Weight: 93.07 kg

DRUGS (1)
  1. LUPRON DEPOT [Suspect]
     Indication: PROSTATE CANCER
     Dates: start: 20071114

REACTIONS (3)
  - NEOPLASM MALIGNANT [None]
  - COMPUTERISED TOMOGRAM ABNORMAL [None]
  - BLINDNESS UNILATERAL [None]
